FAERS Safety Report 8166545-6 (Version None)
Quarter: 2012Q1

REPORT INFORMATION
  Report Type: 
  Country: None (occurrence: None)
  Receive Date: 20120227
  Receipt Date: 20110523
  Transmission Date: 20120608
  Serious: Yes (Other)
  Sender: FDA-Public Use
  Company Number: US-BRISTOL-MYERS SQUIBB COMPANY-15741390

PATIENT
  Sex: Female

DRUGS (1)
  1. TAXOL [Suspect]
     Indication: BREAST CANCER
     Dosage: THERAPY STOPPED 29 MONTHS AGO
     Dates: start: 20080101

REACTIONS (2)
  - NEUROPATHY PERIPHERAL [None]
  - RASH PUSTULAR [None]
